FAERS Safety Report 6475739-7 (Version None)
Quarter: 2009Q4

REPORT INFORMATION
  Report Type: 
  Country: None (occurrence: None)
  Receive Date: 20091119
  Receipt Date: 20090828
  Transmission Date: 20100525
  Serious: Yes (Other)
  Sender: FDA-Public Use
  Company Number: 2009SP026396

PATIENT
  Age: 32 Year
  Sex: Female
  Weight: 78.4723 kg

DRUGS (1)
  1. IMPLANON [Suspect]
     Indication: DRUG USE FOR UNKNOWN INDICATION
     Dosage: SBDE
     Route: 059
     Dates: start: 20071116

REACTIONS (5)
  - ANAEMIA [None]
  - DEPRESSION [None]
  - IMMUNE SYSTEM DISORDER [None]
  - INFLUENZA LIKE ILLNESS [None]
  - SUICIDAL IDEATION [None]
